FAERS Safety Report 12180809 (Version 2)
Quarter: 2016Q1

REPORT INFORMATION
  Report Type: Spontaneous
  Country: US (occurrence: US)
  Receive Date: 20160315
  Receipt Date: 20160317
  Transmission Date: 20160526
  Serious: Yes (Other)
  Sender: FDA-Public Use
  Company Number: US-PFIZER INC-2016148458

PATIENT
  Age: 69 Year
  Sex: Female
  Weight: 58 kg

DRUGS (2)
  1. PREPARATION H SUPPOSITORY [Suspect]
     Active Substance: COCOA BUTTER\PHENYLEPHRINE HYDROCHLORIDE
     Indication: HAEMORRHOIDS
     Dosage: 2 DF, DAILY
     Dates: start: 2015
  2. SENOKOT-S [Concomitant]
     Active Substance: DOCUSATE SODIUM\SENNOSIDES
     Indication: FAECES HARD
     Dosage: UNK

REACTIONS (5)
  - Pain [Unknown]
  - Blood pressure increased [Not Recovered/Not Resolved]
  - Spinal compression fracture [Unknown]
  - Mobility decreased [Unknown]
  - Spinal fracture [Unknown]

NARRATIVE: CASE EVENT DATE: 201511
